FAERS Safety Report 16673115 (Version 4)
Quarter: 2021Q3

REPORT INFORMATION
  Report Type: Spontaneous
  Country: US (occurrence: US)
  Receive Date: 20190806
  Receipt Date: 20210907
  Transmission Date: 20211014
  Serious: Yes (Other)
  Sender: FDA-Public Use
  Company Number: US-PFIZER INC-2019331353

PATIENT
  Age: 59 Year
  Sex: Female

DRUGS (1)
  1. XELJANZ XR [Suspect]
     Active Substance: TOFACITINIB CITRATE
     Dosage: 11 MG

REACTIONS (7)
  - Neoplasm malignant [Unknown]
  - Arthralgia [Unknown]
  - Condition aggravated [Unknown]
  - Pain in extremity [Unknown]
  - Joint warmth [Unknown]
  - Pain [Unknown]
  - Joint swelling [Unknown]
